FAERS Safety Report 20530783 (Version 4)
Quarter: 2022Q1

REPORT INFORMATION
  Report Type: Report from Study
  Country: US (occurrence: US)
  Receive Date: 20220301
  Receipt Date: 20220325
  Transmission Date: 20220423
  Serious: No
  Sender: FDA-Public Use
  Company Number: US-NOVARTISTESTPH-NVSC2022US048324

PATIENT
  Sex: Female
  Weight: 63.492 kg

DRUGS (1)
  1. TREPROSTINIL [Suspect]
     Active Substance: TREPROSTINIL
     Indication: Pulmonary arterial hypertension
     Dosage: 37.5 NANOGRAM PER KILOGRAM (37.5 NG/KG/MIN), CONT
     Route: 058
     Dates: start: 20220106

REACTIONS (9)
  - Malaise [Unknown]
  - Device infusion issue [Unknown]
  - Headache [Unknown]
  - Nausea [Unknown]
  - Dyspnoea [Unknown]
  - Infusion site infection [Unknown]
  - Drug intolerance [Unknown]
  - Infusion site pruritus [Unknown]
  - Drug hypersensitivity [Unknown]
